FAERS Safety Report 15749755 (Version 1)
Quarter: 2018Q4

REPORT INFORMATION
  Report Type: Spontaneous
  Country: US (occurrence: US)
  Receive Date: 20181220
  Receipt Date: 20181220
  Transmission Date: 20190205
  Serious: Yes (Hospitalization)
  Sender: FDA-Public Use
  Company Number: None

PATIENT
  Age: 85 Year
  Sex: Male
  Weight: 82.4 kg

DRUGS (8)
  1. METFORMIN [Concomitant]
     Active Substance: METFORMIN HYDROCHLORIDE
  2. METOPROLOL SUCCINATE. [Concomitant]
     Active Substance: METOPROLOL SUCCINATE
  3. TAMSULOSIN [Concomitant]
     Active Substance: TAMSULOSIN
  4. FOLIC ACID. [Concomitant]
     Active Substance: FOLIC ACID
  5. ELIQUIS [Concomitant]
     Active Substance: APIXABAN
     Dates: start: 20180718, end: 20181101
  6. ATORVASTATIN [Concomitant]
     Active Substance: ATORVASTATIN
  7. LISINOPRIL. [Concomitant]
     Active Substance: LISINOPRIL
  8. ELIQUIS [Suspect]
     Active Substance: APIXABAN
     Indication: ATRIAL FIBRILLATION
     Route: 048
     Dates: start: 20180718

REACTIONS (6)
  - Hyperhidrosis [None]
  - Dyspnoea [None]
  - Melaena [None]
  - Feeling abnormal [None]
  - Chest pain [None]
  - Gastric ulcer [None]

NARRATIVE: CASE EVENT DATE: 20181101
